FAERS Safety Report 6442666-0 (Version None)
Quarter: 2009Q4

REPORT INFORMATION
  Report Type: 
  Country: None (occurrence: None)
  Receive Date: 20091117
  Receipt Date: 20091105
  Transmission Date: 20100525
  Serious: Yes (Hospitalization)
  Sender: FDA-Public Use
  Company Number: IT-JNJFOC-20091102528

PATIENT
  Sex: Female

DRUGS (1)
  1. CONTRAMAL [Suspect]
     Indication: PAIN IN EXTREMITY
     Route: 048

REACTIONS (3)
  - DRY MOUTH [None]
  - NAUSEA [None]
  - PALPITATIONS [None]
